FAERS Safety Report 15823559 (Version 1)
Quarter: 2019Q1

REPORT INFORMATION
  Report Type: Report from Study
  Country: US (occurrence: US)
  Receive Date: 20190114
  Receipt Date: 20190114
  Transmission Date: 20190417
  Serious: Yes (Other)
  Sender: FDA-Public Use
  Company Number: PHEH2019US001551

PATIENT
  Sex: Female

DRUGS (2)
  1. ENTRESTO [Suspect]
     Active Substance: SACUBITRIL\VALSARTAN
     Indication: PRODUCT USED FOR UNKNOWN INDICATION
     Dosage: 1 DF, BID (24 MG SACUBITRIL AND 26 MG VALSARTAN)
     Route: 048
     Dates: start: 201802
  2. ENTRESTO [Suspect]
     Active Substance: SACUBITRIL\VALSARTAN
     Dosage: 1 DF, BID (49 MG SACUBITRIL AND 51 MG VALSARTAN)
     Route: 048

REACTIONS (6)
  - Chronic obstructive pulmonary disease [Unknown]
  - Blood cholesterol increased [Unknown]
  - Wrong technique in product usage process [Unknown]
  - Eye disorder [Unknown]
  - Product prescribing error [Unknown]
  - Diabetes mellitus [Unknown]
